FAERS Safety Report 18621405 (Version 16)
Quarter: 2021Q2

REPORT INFORMATION
  Report Type: Report from Study
  Country: CO (occurrence: CO)
  Receive Date: 20201215
  Receipt Date: 20210616
  Transmission Date: 20210717
  Serious: Yes (Hospitalization, Other)
  Sender: FDA-Public Use
  Company Number: CO-TAKEDA-CO202025229

PATIENT
  Age: 8 Year
  Sex: Male
  Weight: 25 kg

DRUGS (1)
  1. IDURSULFASE [Suspect]
     Active Substance: IDURSULFASE
     Indication: MUCOPOLYSACCHARIDOSIS II
     Dosage: 0.5 MILLIGRAM/KILOGRAM, 1/WEEK
     Route: 042
     Dates: start: 20171114

REACTIONS (27)
  - Toxic skin eruption [Recovered/Resolved]
  - Growth retardation [Recovering/Resolving]
  - Wound complication [Not Recovered/Not Resolved]
  - Skin injury [Recovering/Resolving]
  - Diarrhoea [Recovering/Resolving]
  - Urticaria pigmentosa [Recovered/Resolved]
  - Lip haemorrhage [Not Recovered/Not Resolved]
  - General physical health deterioration [Recovering/Resolving]
  - Cellulitis [Not Recovered/Not Resolved]
  - Inappropriate schedule of product administration [Recovered/Resolved]
  - Crying [Not Recovered/Not Resolved]
  - Dermatitis [Recovering/Resolving]
  - Pyrexia [Recovering/Resolving]
  - Wound haemorrhage [Recovering/Resolving]
  - Haemorrhage [Recovering/Resolving]
  - Generalised oedema [Recovering/Resolving]
  - Psychomotor hyperactivity [Recovering/Resolving]
  - Lip injury [Unknown]
  - Back pain [Not Recovered/Not Resolved]
  - Neck injury [Recovering/Resolving]
  - Vomiting [Recovering/Resolving]
  - Urticarial vasculitis [Recovered/Resolved]
  - Insomnia [Recovering/Resolving]
  - Weight increased [Recovered/Resolved]
  - Skin lesion [Recovering/Resolving]
  - Face oedema [Recovering/Resolving]
  - Screaming [Recovering/Resolving]

NARRATIVE: CASE EVENT DATE: 20200201
